FAERS Safety Report 5415244-X (Version None)
Quarter: 2007Q3

REPORT INFORMATION
  Report Type: 
  Country: None (occurrence: None)
  Receive Date: 20070813
  Receipt Date: 20070724
  Transmission Date: 20080115
  Serious: Yes (Hospitalization)
  Sender: FDA-Public Use
  Company Number: 2007RR-08970

PATIENT
  Age: 62 Year
  Sex: Male

DRUGS (8)
  1. ALPRAZOLAM [Suspect]
  2. DIAZEPAM [Suspect]
     Indication: DRUG DEPENDENCE
     Dosage: 7 MG, QD
  3. LORAZEPAM [Suspect]
     Indication: ANXIETY
     Dosage: 1.5 MG, QD
  4. LORAZEPAM [Suspect]
     Indication: ANXIETY
     Dosage: 1 MG, BID
  5. LORAZEPAM [Suspect]
     Indication: ANXIETY
  6. TEMAZEPAM [Suspect]
     Indication: ANXIETY
  7. ZOPICLONE (ZOPICLONE) [Suspect]
     Indication: DRUG DEPENDENCE
     Dosage: 7.5 MG, QD
  8. FLUOXETINE [Suspect]
     Dosage: 20 MG, QD

REACTIONS (16)
  - ABDOMINAL INJURY [None]
  - AGITATION [None]
  - ANXIETY [None]
  - CHEST INJURY [None]
  - DRUG DEPENDENCE [None]
  - DRUG WITHDRAWAL SYNDROME [None]
  - FEAR [None]
  - IMPULSIVE BEHAVIOUR [None]
  - INSOMNIA [None]
  - JEJUNECTOMY [None]
  - LAPAROTOMY [None]
  - NECK INJURY [None]
  - PANIC REACTION [None]
  - SELF INJURIOUS BEHAVIOUR [None]
  - SKIN LACERATION [None]
  - SUICIDE ATTEMPT [None]
